FAERS Safety Report 12619851 (Version 2)
Quarter: 2016Q3

REPORT INFORMATION
  Report Type: Report from Study
  Country: BR (occurrence: BR)
  Receive Date: 20160803
  Receipt Date: 20160919
  Transmission Date: 20161109
  Serious: Yes (Hospitalization, Other)
  Sender: FDA-Public Use
  Company Number: PHHY2016BR105380

PATIENT
  Sex: Male
  Weight: 82 kg

DRUGS (3)
  1. ONBREZ BREEZHALER [Suspect]
     Active Substance: INDACATEROL
     Indication: BRONCHIECTASIS
  2. ONBREZ BREEZHALER [Suspect]
     Active Substance: INDACATEROL
     Indication: DYSPNOEA
     Dosage: 1 DF, QN (01 INHALING AT NIGHT)
     Route: 055
  3. ONBREZ BREEZHALER [Suspect]
     Active Substance: INDACATEROL
     Indication: BRONCHIAL OBSTRUCTION

REACTIONS (7)
  - Bronchiectasis [Unknown]
  - Pneumonia [Unknown]
  - Malaise [Unknown]
  - Bronchial obstruction [Unknown]
  - H1N1 influenza [Not Recovered/Not Resolved]
  - Dyspnoea [Not Recovered/Not Resolved]
  - Product use issue [Unknown]
